FAERS Safety Report 11871584 (Version 4)
Quarter: 2016Q1

REPORT INFORMATION
  Report Type: Spontaneous
  Country: FR (occurrence: FR)
  Receive Date: 20151228
  Receipt Date: 20160219
  Transmission Date: 20160526
  Serious: Yes (Hospitalization)
  Sender: FDA-Public Use
  Company Number: FR-PFIZER INC-2015457289

PATIENT
  Age: 62 Year
  Sex: Male

DRUGS (12)
  1. BECILAN [Suspect]
     Active Substance: PYRIDOXINE
     Dosage: 250 MG, 3X/DAY
     Route: 048
     Dates: start: 20150529, end: 20150530
  2. TRIATEC [Suspect]
     Active Substance: RAMIPRIL
     Dosage: 2.5 MG, 1X/DAY
     Route: 048
     Dates: start: 20150529
  3. BEVITINE [Suspect]
     Active Substance: THIAMINE
     Dosage: 250 MG, 3X/DAY
     Route: 048
     Dates: start: 20150529, end: 20150530
  4. EUPRESSYL [Suspect]
     Active Substance: URAPIDIL
     Indication: HYPERTENSION
     Dosage: 250 MG, DAILY
     Route: 048
     Dates: start: 20150529
  5. TAHOR [Suspect]
     Active Substance: ATORVASTATIN CALCIUM
     Indication: DYSLIPIDAEMIA
     Dosage: 40 MG, 1X/DAY
     Route: 048
     Dates: start: 20150529
  6. LOVENOX [Suspect]
     Active Substance: ENOXAPARIN SODIUM
     Dosage: 1 DF, DAILY
     Route: 058
     Dates: start: 20150601
  7. PARACETAMOL [Suspect]
     Active Substance: ACETAMINOPHEN
     Indication: PAIN
     Dosage: 1 G, 4X/DAY
     Route: 048
     Dates: start: 20150529
  8. IOMERON [Suspect]
     Active Substance: IOMEPROL
     Dosage: 1 DF, SINGLE
     Route: 042
     Dates: start: 20150529, end: 20150529
  9. SERESTA [Suspect]
     Active Substance: OXAZEPAM
     Indication: ANXIETY
     Dosage: 10 MG, 4X/DAY
     Route: 048
     Dates: start: 20150529, end: 20150530
  10. DIPROSONE [Concomitant]
     Active Substance: BETAMETHASONE DIPROPIONATE
     Dosage: UNK
  11. AMLOR [Suspect]
     Active Substance: AMLODIPINE BESYLATE
     Indication: HYPERTENSION
     Dosage: 5 MG, 1X/DAY
     Route: 048
     Dates: start: 20150601
  12. KARDEGIC [Suspect]
     Active Substance: ASPIRIN LYSINE
     Dosage: 160 MG, 1X/DAY
     Route: 048
     Dates: start: 20150528

REACTIONS (1)
  - Toxic skin eruption [Recovered/Resolved]

NARRATIVE: CASE EVENT DATE: 20150601
